FAERS Safety Report 4552481-0 (Version None)
Quarter: 2005Q1

REPORT INFORMATION
  Report Type: 
  Country: None (occurrence: None)
  Receive Date: 20050114
  Receipt Date: 20040927
  Transmission Date: 20050727
  Serious: Yes (Death, Hospitalization)
  Sender: FDA-Public Use
  Company Number: US-BRISTOL-MYERS SQUIBB COMPANY-12713376

PATIENT
  Age: 72 Year
  Sex: Female

DRUGS (1)
  1. ENKAID [Suspect]
     Dosage: FINAL DOSE AND DATE NOT PROVIDED
     Dates: end: 20040101

REACTIONS (1)
  - CARDIAC ARREST [None]
